FAERS Safety Report 4566740-9 (Version None)
Quarter: 2005Q1

REPORT INFORMATION
  Report Type: 
  Country: None (occurrence: None)
  Receive Date: 20050201
  Receipt Date: 20011002
  Transmission Date: 20050727
  Serious: Yes (Other)
  Sender: FDA-Public Use
  Company Number: US-BRISTOL-MYERS SQUIBB COMPANY-11043411

PATIENT
  Sex: Female

DRUGS (19)
  1. STADOL [Suspect]
     Route: 045
  2. LEVAQUIN [Concomitant]
  3. SILVER SULFADIAZINE [Concomitant]
     Dosage: 1% CREAM
  4. BUTALBITAL+APAP+CAFFEINE [Concomitant]
  5. HYDROCODONE + ACETAMINOPHEN [Concomitant]
     Dosage: 5/500MG TABLETS
  6. ERY-TAB [Concomitant]
  7. ZOMIG [Concomitant]
  8. CARISOPRODOL [Concomitant]
  9. MICROZIDE [Concomitant]
  10. LAMISIL [Concomitant]
  11. PROZAC [Concomitant]
  12. OXYCONTIN [Concomitant]
  13. ZITHROMAX [Concomitant]
     Dosage: Z-PACK
  14. HYDRO-PC [Concomitant]
  15. SEROQUEL [Concomitant]
  16. EFFEXOR XR [Concomitant]
  17. CLONAZEPAM [Concomitant]
  18. HYOSCYAMINE SULFATE [Concomitant]
     Dosage: 0.125MG TABLET
  19. ATUSS MS [Concomitant]

REACTIONS (1)
  - DEPENDENCE [None]
